FAERS Safety Report 16302651 (Version 1)
Quarter: 2019Q2

REPORT INFORMATION
  Report Type: Spontaneous
  Country: US (occurrence: US)
  Receive Date: 20190513
  Receipt Date: 20190513
  Transmission Date: 20190711
  Serious: No
  Sender: FDA-Public Use
  Company Number: US-GLAXOSMITHKLINE-US2019082245

PATIENT
  Age: 68 Year
  Sex: Male

DRUGS (1)
  1. ABREVA [Suspect]
     Active Substance: DOCOSANOL
     Indication: ORAL HERPES
     Dosage: UNK (5 TIMES)
     Route: 062

REACTIONS (4)
  - Lip dry [Unknown]
  - Lip haemorrhage [Unknown]
  - Oral herpes [Unknown]
  - Condition aggravated [Unknown]
